FAERS Safety Report 6829575-X (Version None)
Quarter: 2010Q3

REPORT INFORMATION
  Report Type: 
  Country: None (occurrence: None)
  Receive Date: 20100709
  Receipt Date: 20070330
  Transmission Date: 20110219
  Serious: No
  Sender: FDA-Public Use
  Company Number: US-PFIZER INC-2007015613

PATIENT
  Sex: Female
  Weight: 69.85 kg

DRUGS (7)
  1. CHANTIX [Suspect]
     Indication: SMOKING CESSATION THERAPY
  2. HYDROCHLOROTHIAZIDE [Concomitant]
  3. LYRICA [Concomitant]
  4. INSULIN [Concomitant]
  5. ZETIA [Concomitant]
  6. VALSARTAN [Concomitant]
  7. CADUET [Concomitant]

REACTIONS (1)
  - DRUG INEFFECTIVE [None]
